FAERS Safety Report 5336326-7 (Version None)
Quarter: 2007Q2

REPORT INFORMATION
  Report Type: 
  Country: None (occurrence: None)
  Receive Date: 20070523
  Receipt Date: 20070508
  Transmission Date: 20071010
  Serious: No
  Sender: FDA-Public Use
  Company Number: 156344USA

PATIENT
  Sex: Male

DRUGS (1)
  1. NEFAZODONE HYDROCHLORIDE (NEFAZODONE) [Suspect]
     Dosage: (150 MG), ORAL
     Route: 048

REACTIONS (1)
  - BLOOD BILIRUBIN INCREASED [None]
